FAERS Safety Report 16483810 (Version 2)
Quarter: 2019Q3

REPORT INFORMATION
  Report Type: Spontaneous
  Country: US (occurrence: US)
  Receive Date: 20190627
  Receipt Date: 20190710
  Transmission Date: 20191004
  Serious: No
  Sender: FDA-Public Use
  Company Number: US-PFIZER INC-2019274136

PATIENT
  Age: 61 Year
  Sex: Female

DRUGS (5)
  1. XELJANZ XR [Suspect]
     Active Substance: TOFACITINIB CITRATE
     Dosage: 11 MG, UNK
     Dates: start: 20190610
  2. DUEXIS [Concomitant]
     Active Substance: FAMOTIDINE\IBUPROFEN
     Dosage: AS NEEDED
  3. IBUPROFEN. [Concomitant]
     Active Substance: IBUPROFEN
     Dosage: AS NEEDED
  4. XELJANZ XR [Suspect]
     Active Substance: TOFACITINIB CITRATE
     Dosage: 11 MG, UNK
     Dates: start: 20190501
  5. DICLOFENAC [Concomitant]
     Active Substance: DICLOFENAC
     Dosage: AS NEEDED

REACTIONS (7)
  - Fatigue [Unknown]
  - Paraesthesia [Unknown]
  - Dizziness [Unknown]
  - Diarrhoea [Unknown]
  - Hypotension [Unknown]
  - Hypoaesthesia [Unknown]
  - Abdominal pain upper [Unknown]
